FAERS Safety Report 7190293-2 (Version None)
Quarter: 2010Q4

REPORT INFORMATION
  Report Type: 
  Country: None (occurrence: None)
  Receive Date: 20101223
  Receipt Date: 20101215
  Transmission Date: 20110411
  Serious: No
  Sender: FDA-Public Use
  Company Number: US-BIOGENIDEC-2010BI044425

PATIENT
  Age: 38 Year
  Sex: Male

DRUGS (2)
  1. AVONEX [Suspect]
     Indication: MULTIPLE SCLEROSIS
     Route: 030
     Dates: start: 20030801, end: 20040201
  2. AVONEX [Suspect]
     Route: 030
     Dates: start: 20100212

REACTIONS (2)
  - INFLUENZA LIKE ILLNESS [None]
  - NASOPHARYNGITIS [None]
